FAERS Safety Report 6918823-3 (Version None)
Quarter: 2010Q3

REPORT INFORMATION
  Report Type: 
  Country: None (occurrence: None)
  Receive Date: 20100811
  Receipt Date: 20100802
  Transmission Date: 20110219
  Serious: Yes (Hospitalization, Other)
  Sender: FDA-Public Use
  Company Number: US-JNJFOC-20100801198

PATIENT
  Sex: Female
  Weight: 74.84 kg

DRUGS (11)
  1. RISPERDAL [Suspect]
     Indication: SCHIZOAFFECTIVE DISORDER
     Route: 048
  2. RISPERDAL [Suspect]
     Route: 048
  3. AGGRENOX [Suspect]
     Indication: COAGULOPATHY
     Route: 048
  4. PLAVIX [Suspect]
     Indication: BLOOD CHOLESTEROL
     Route: 048
  5. FOSAMAX [Concomitant]
     Indication: BONE DENSITY ABNORMAL
     Route: 048
  6. ATENOLOL [Concomitant]
     Indication: BLOOD PRESSURE
     Route: 048
  7. ZOLOFT [Concomitant]
     Indication: DEPRESSION
     Route: 048
  8. CLONAZEPAM [Concomitant]
     Indication: PANIC ATTACK
     Route: 048
  9. JUVENON [Concomitant]
     Indication: NUTRITIONAL SUPPORT
     Route: 048
  10. ASCORBIC ACID [Concomitant]
     Indication: NUTRITIONAL SUPPORT
     Route: 048
  11. SIMVASTATIN [Concomitant]
     Indication: BLOOD CHOLESTEROL
     Route: 048

REACTIONS (8)
  - DIARRHOEA [None]
  - DIZZINESS [None]
  - DYSPNOEA [None]
  - HYPERTENSION [None]
  - RESTLESSNESS [None]
  - TINNITUS [None]
  - TRANSIENT ISCHAEMIC ATTACK [None]
  - WRONG TECHNIQUE IN DRUG USAGE PROCESS [None]
